FAERS Safety Report 9680005 (Version 2)
Quarter: 2013Q4

REPORT INFORMATION
  Report Type: Spontaneous
  Country: US (occurrence: US)
  Receive Date: 20131110
  Receipt Date: 20131211
  Transmission Date: 20140711
  Serious: Yes (Hospitalization, Other)
  Sender: FDA-Public Use
  Company Number: US-SA-2013SA114091

PATIENT
  Age: 70 Year
  Sex: Female
  Weight: 74.84 kg

DRUGS (14)
  1. LASIX [Suspect]
     Indication: HYPERTENSION
     Route: 065
     Dates: end: 201310
  2. ADVIL [Suspect]
     Indication: BACK PAIN
     Route: 048
     Dates: end: 201310
  3. NORVASC [Suspect]
     Indication: HYPERTENSION
     Route: 065
     Dates: end: 201310
  4. CALCIUM CITRATE/VITAMIN D NOS [Concomitant]
  5. BIOTIN [Concomitant]
  6. METHENAMINE [Concomitant]
  7. OMEPRAZOLE [Concomitant]
  8. POTASSIUM CHLORIDE [Concomitant]
  9. SINGULAIR [Concomitant]
  10. SPIRIVA [Concomitant]
  11. MAG-OX [Concomitant]
  12. AMITRIPTYLINE [Concomitant]
  13. GABAPENTIN [Concomitant]
  14. VITAMIN B12 [Concomitant]
     Dosage: ALSO TAKE ORAL VITAMIN B12
     Route: 030

REACTIONS (15)
  - Adverse drug reaction [Unknown]
  - Somnolence [Unknown]
  - Peripheral coldness [Recovering/Resolving]
  - Amnesia [Recovering/Resolving]
  - Swelling [Recovering/Resolving]
  - Dyspnoea [Recovering/Resolving]
  - Blood potassium decreased [Unknown]
  - Hypotension [Unknown]
  - Tremor [Recovering/Resolving]
  - Asthenia [Recovering/Resolving]
  - Somnolence [Recovering/Resolving]
  - Dysgeusia [Recovering/Resolving]
  - Musculoskeletal discomfort [Recovering/Resolving]
  - Feeling abnormal [Recovering/Resolving]
  - Limb discomfort [Recovering/Resolving]
